FAERS Safety Report 15702478 (Version 3)
Quarter: 2019Q2

REPORT INFORMATION
  Report Type: Spontaneous
  Country: ES (occurrence: ES)
  Receive Date: 20181210
  Receipt Date: 20190411
  Transmission Date: 20190711
  Serious: Yes (Hospitalization, Other)
  Sender: FDA-Public Use
  Company Number: ES-ACCORD-095328

PATIENT
  Sex: Male
  Weight: .84 kg

DRUGS (6)
  1. TACROLIMUS. [Suspect]
     Active Substance: TACROLIMUS
     Indication: IMMUNOSUPPRESSION
     Route: 064
  2. BETAMETHASONE. [Suspect]
     Active Substance: BETAMETHASONE
     Indication: PRODUCT USED FOR UNKNOWN INDICATION
     Dosage: TWO DOSES
     Route: 064
  3. TRANDATE [Concomitant]
     Active Substance: LABETALOL HYDROCHLORIDE
     Route: 064
  4. ACETYLSALICYLIC ACID [Concomitant]
     Active Substance: ASPIRIN
     Route: 064
  5. ADALAT [Concomitant]
     Active Substance: NIFEDIPINE
     Route: 064
  6. PREDNISONE. [Suspect]
     Active Substance: PREDNISONE
     Indication: IMMUNOSUPPRESSION
     Dosage: 5 MILLIGRAM, QD
     Route: 064

REACTIONS (7)
  - Foetal exposure during pregnancy [Unknown]
  - Low birth weight baby [Unknown]
  - Hypertrophic cardiomyopathy [Recovered/Resolved]
  - Neonatal cholestasis [Unknown]
  - Neonatal respiratory distress syndrome [Unknown]
  - Mitral valve incompetence [Recovered/Resolved]
  - Premature baby [Unknown]
